FAERS Safety Report 5502613-2 (Version None)
Quarter: 2007Q4

REPORT INFORMATION
  Report Type: 
  Country: None (occurrence: None)
  Receive Date: 20071031
  Receipt Date: 20071019
  Transmission Date: 20080405
  Serious: Yes (Hospitalization, Other)
  Sender: FDA-Public Use
  Company Number: US-WYE-H00764907

PATIENT
  Sex: Male
  Weight: 82 kg

DRUGS (5)
  1. TORISEL [Suspect]
     Indication: RENAL CELL CARCINOMA STAGE UNSPECIFIED
     Route: 042
     Dates: start: 20071004, end: 20071004
  2. TORISEL [Suspect]
     Route: 042
     Dates: start: 20071011, end: 20071011
  3. CIPRO [Concomitant]
     Indication: CELLULITIS
     Dosage: NOT PROVIDED
     Route: 048
     Dates: start: 20071011
  4. DICLOXACILLIN [Concomitant]
     Indication: CELLULITIS
     Dosage: NOT PROVIDED
     Route: 048
     Dates: start: 20071011
  5. IBUPROFEN [Concomitant]
     Dosage: OCCASIONALLY
     Route: 065

REACTIONS (2)
  - PNEUMONITIS [None]
  - RESPIRATORY DISTRESS [None]
